FAERS Safety Report 20780847 (Version 1)
Quarter: 2022Q2

REPORT INFORMATION
  Report Type: Spontaneous
  Country: US (occurrence: US)
  Receive Date: 20220504
  Receipt Date: 20220504
  Transmission Date: 20220721
  Serious: Yes (Other)
  Sender: FDA-Public Use
  Company Number: US-ORGANON-O2205USA000196

PATIENT
  Sex: Female

DRUGS (1)
  1. NEXPLANON [Suspect]
     Active Substance: ETONOGESTREL
     Dosage: 1 IMPLANT (1 DOSAGE FORM )
     Route: 059

REACTIONS (5)
  - Device dislocation [Recovered/Resolved]
  - Device issue [Recovered/Resolved]
  - Limb discomfort [Unknown]
  - Complication of device removal [Recovered/Resolved]
  - Implant site pain [Unknown]
